FAERS Safety Report 4550931-7 (Version None)
Quarter: 2004Q4

REPORT INFORMATION
  Report Type: 
  Country: None (occurrence: None)
  Receive Date: 20041217
  Receipt Date: 20040903
  Transmission Date: 20050328
  Serious: No
  Sender: FDA-Public Use
  Company Number: 2004-BP-07782BP

PATIENT
  Age: 65 Year
  Sex: Female

DRUGS (7)
  1. SPIRIVA [Suspect]
     Indication: CHRONIC OBSTRUCTIVE AIRWAYS DISEASE
     Dosage: 18 MCG (18 MCG) , IH
     Route: 055
     Dates: start: 20040901, end: 20040902
  2. ATROVENT [Suspect]
     Indication: CHRONIC OBSTRUCTIVE AIRWAYS DISEASE
     Dosage: IH
     Route: 055
  3. PLAVIX [Concomitant]
  4. PREMARIN [Concomitant]
  5. NEXIUM [Concomitant]
  6. ACETYLSALICYLIC ACID SRT [Concomitant]
  7. TRINIBIL [Concomitant]

REACTIONS (5)
  - BLISTER [None]
  - DYSPHAGIA [None]
  - OEDEMA PERIPHERAL [None]
  - PRURITUS GENERALISED [None]
  - URTICARIA [None]
